FAERS Safety Report 7786499-1 (Version None)
Quarter: 2011Q3

REPORT INFORMATION
  Report Type: 
  Country: None (occurrence: None)
  Receive Date: 20110929
  Receipt Date: 20110922
  Transmission Date: 20111222
  Serious: Yes (Hospitalization)
  Sender: FDA-Public Use
  Company Number: US-GLAXOSMITHKLINE-A0842193A

PATIENT
  Age: 63 Year
  Sex: Male
  Weight: 100 kg

DRUGS (8)
  1. AVANDIA [Suspect]
     Indication: DIABETES MELLITUS
     Dosage: 4MG PER DAY
     Route: 048
     Dates: start: 20060703, end: 20070901
  2. ALBUTEROL [Concomitant]
  3. FLEXERIL [Concomitant]
  4. METFORMIN HCL [Concomitant]
  5. SEREVENT [Concomitant]
  6. FLOVENT [Concomitant]
  7. ZANTAC [Concomitant]
  8. FLONASE [Concomitant]

REACTIONS (10)
  - CARDIAC FAILURE CONGESTIVE [None]
  - ARRHYTHMIA [None]
  - VENTRICULAR FIBRILLATION [None]
  - DEPRESSION [None]
  - ARTERIOSCLEROSIS [None]
  - MYOCARDIAL INFARCTION [None]
  - CORONARY ARTERY DISEASE [None]
  - HYPERLIPIDAEMIA [None]
  - HYPERTENSION [None]
  - CARDIO-RESPIRATORY ARREST [None]
